FAERS Safety Report 21057763 (Version 1)
Quarter: 2022Q3

REPORT INFORMATION
  Report Type: Other
  Country: US (occurrence: None)
  Receive Date: 20220708
  Receipt Date: 20220708
  Transmission Date: 20221027
  Serious: Yes (Hospitalization, Disabling)
  Sender: FDA-Public Use
  Company Number: US-ROCHE-3132446

PATIENT
  Age: 11 Year
  Sex: Female

DRUGS (8)
  1. RITUXIMAB [Suspect]
     Active Substance: RITUXIMAB
     Indication: Prophylaxis against transplant rejection
     Route: 065
  2. TOCILIZUMAB [Suspect]
     Active Substance: TOCILIZUMAB
     Indication: COVID-19 pneumonia
     Route: 065
  3. TOCILIZUMAB [Suspect]
     Active Substance: TOCILIZUMAB
     Indication: Acute respiratory distress syndrome
  4. PREDNISONE [Suspect]
     Active Substance: PREDNISONE
     Indication: Prophylaxis against transplant rejection
     Route: 065
  5. TACROLIMUS [Suspect]
     Active Substance: TACROLIMUS
     Indication: Prophylaxis against transplant rejection
     Route: 065
  6. NITRIC OXIDE [Concomitant]
     Active Substance: NITRIC OXIDE
  7. METHYLPREDNISOLONE [Concomitant]
     Active Substance: METHYLPREDNISOLONE
     Indication: Multisystem inflammatory syndrome
  8. ANAKINRA [Concomitant]
     Active Substance: ANAKINRA
     Indication: Multisystem inflammatory syndrome

REACTIONS (4)
  - COVID-19 pneumonia [Recovered/Resolved]
  - Bronchopulmonary aspergillosis [Unknown]
  - Acute respiratory distress syndrome [Recovered/Resolved]
  - Off label use [Unknown]
